FAERS Safety Report 5835346-3 (Version None)
Quarter: 2008Q3

REPORT INFORMATION
  Report Type: 
  Country: None (occurrence: None)
  Receive Date: 20080731
  Receipt Date: 20080723
  Transmission Date: 20090109
  Serious: Yes (Other)
  Sender: FDA-Public Use
  Company Number: CHPA2008US12439

PATIENT
  Age: 51 Year
  Sex: Male

DRUGS (3)
  1. EXCEDRIN EXTRA STRENGTH (NCH)(CAFFEINE CITRATE, ACETYLSALICYLIC ACID, [Suspect]
     Indication: TOOTHACHE
     Dosage: 19 DF, IN 26 HOURS, ORAL
     Route: 048
     Dates: start: 20080709, end: 20080710
  2. LIPITOR [Concomitant]
  3. PROTONIX [Concomitant]

REACTIONS (2)
  - OVERDOSE [None]
  - URINARY TRACT INFECTION [None]
